FAERS Safety Report 25038675 (Version 1)
Quarter: 2025Q1

REPORT INFORMATION
  Report Type: Spontaneous
  Country: US (occurrence: US)
  Receive Date: 20250304
  Receipt Date: 20250304
  Transmission Date: 20250409
  Serious: Yes (Hospitalization, Other)
  Sender: NOVITIUM PHARMA
  Company Number: US-NOVITIUMPHARMA-2025USNVP00474

PATIENT
  Age: 38 Year
  Sex: Male

DRUGS (7)
  1. PREDNISONE [Suspect]
     Active Substance: PREDNISONE
     Indication: Hypopituitarism
  2. PREDNISONE [Suspect]
     Active Substance: PREDNISONE
  3. LAMOTRIGINE [Concomitant]
     Active Substance: LAMOTRIGINE
     Indication: Juvenile myoclonic epilepsy
  4. HYDROMORPHONE [Concomitant]
     Active Substance: HYDROMORPHONE
     Indication: Symptomatic treatment
  5. DIPHENHYDRAMINE [Concomitant]
     Active Substance: DIPHENHYDRAMINE
     Indication: Symptomatic treatment
  6. DROPERIDOL [Concomitant]
     Active Substance: DROPERIDOL
     Indication: Symptomatic treatment
  7. ACYCLOVIR [Concomitant]
     Active Substance: ACYCLOVIR
     Indication: Product used for unknown indication

REACTIONS (4)
  - Meningitis bacterial [Recovered/Resolved]
  - Lactic acidosis [Unknown]
  - Septic shock [Unknown]
  - Hypotension [Unknown]
